FAERS Safety Report 12609913 (Version 3)
Quarter: 2016Q3

REPORT INFORMATION
  Report Type: Spontaneous
  Country: US (occurrence: US)
  Receive Date: 20160801
  Receipt Date: 20160906
  Transmission Date: 20161109
  Serious: No
  Sender: FDA-Public Use
  Company Number: US-BAYER-2016-148250

PATIENT
  Age: 18 Year
  Sex: Female

DRUGS (1)
  1. ALEVE [Suspect]
     Active Substance: NAPROXEN SODIUM
     Indication: HEADACHE
     Dosage: MEDICATION NOT GIVEN

REACTIONS (1)
  - Intercepted medication error [None]

NARRATIVE: CASE EVENT DATE: 20160727
